FAERS Safety Report 4621173-1 (Version None)
Quarter: 2005Q1

REPORT INFORMATION
  Report Type: 
  Country: None (occurrence: None)
  Receive Date: 20050328
  Receipt Date: 20050316
  Transmission Date: 20050727
  Serious: Yes (Hospitalization)
  Sender: FDA-Public Use
  Company Number: 2004117616

PATIENT
  Age: 24 Year
  Sex: Male
  Weight: 80 kg

DRUGS (2)
  1. BEXTRA [Suspect]
     Indication: TONSILLECTOMY
     Dosage: 40 MG (40 MG, 1 IN 1 D), ORAL
     Route: 048
     Dates: start: 20041201, end: 20041210
  2. DICLOFENAC SODIUM [Suspect]
     Indication: TONSILLECTOMY
     Dosage: 150 MG (75 MG, 2 IN 1 D), ORAL
     Route: 048
     Dates: start: 20041201, end: 20041210

REACTIONS (2)
  - HAEMORRHAGE [None]
  - TONSILLAR DISORDER [None]
